FAERS Safety Report 5189903-0 (Version None)
Quarter: 2006Q4

REPORT INFORMATION
  Report Type: 
  Country: None (occurrence: None)
  Receive Date: 20061215
  Receipt Date: 20061207
  Transmission Date: 20070319
  Serious: Yes (Hospitalization)
  Sender: FDA-Public Use
  Company Number: 2006151039

PATIENT
  Sex: Female

DRUGS (5)
  1. LIPITOR [Suspect]
     Indication: DYSLIPIDAEMIA
     Dosage: 10 MG (10 MG, 1 IN 1 D), ORAL
     Route: 048
     Dates: start: 20060701, end: 20060101
  2. CORGARD [Concomitant]
  3. METFORMIN HCL [Concomitant]
  4. PAMELOR [Concomitant]
  5. OMEPRAZOLE [Concomitant]

REACTIONS (6)
  - BLOOD GLUCOSE INCREASED [None]
  - BLOOD PRESSURE INCREASED [None]
  - EYE SWELLING [None]
  - HEADACHE [None]
  - IMPLANT SITE PAIN [None]
  - LACRIMATION INCREASED [None]
